FAERS Safety Report 4635923-1 (Version None)
Quarter: 2005Q2

REPORT INFORMATION
  Report Type: 
  Country: None (occurrence: None)
  Receive Date: 20050413
  Receipt Date: 20050331
  Transmission Date: 20051028
  Serious: Yes (Other)
  Sender: FDA-Public Use
  Company Number: S05-USA-00632-01

PATIENT
  Age: 76 Year
  Sex: Female

DRUGS (10)
  1. LEXAPRO [Suspect]
     Indication: ANXIETY
     Dosage: 20 MG QD PO
     Route: 048
     Dates: end: 20050128
  2. LEXAPRO [Suspect]
     Indication: DEPRESSION
     Dosage: 20 MG QD PO
     Route: 048
     Dates: end: 20050128
  3. 12102004 [Suspect]
     Indication: ANXIETY
     Dosage: 10 MG QD PO
     Route: 048
  4. 12102004 [Suspect]
     Indication: DEPRESSION
     Dosage: 10 MG QD PO
     Route: 048
  5. PAMELOR [Concomitant]
  6. LORAZEPAM [Concomitant]
  7. ACCUPRIL [Concomitant]
  8. PROTONIX [Concomitant]
  9. ULTRACET [Concomitant]
  10. DETROL LA [Concomitant]

REACTIONS (4)
  - DYSPNOEA [None]
  - HYPONATRAEMIA [None]
  - MENTAL STATUS CHANGES [None]
  - ORAL INTAKE REDUCED [None]
